FAERS Safety Report 4652239-8 (Version None)
Quarter: 2005Q2

REPORT INFORMATION
  Report Type: 
  Country: None (occurrence: None)
  Receive Date: 20050502
  Receipt Date: 20050418
  Transmission Date: 20051028
  Serious: Yes (Hospitalization)
  Sender: FDA-Public Use
  Company Number: 2005060699

PATIENT
  Age: 58 Year
  Sex: Female

DRUGS (1)
  1. LATANOPROST [Suspect]
     Indication: OPEN ANGLE GLAUCOMA
     Dosage: (1 DROP, 1 IN 1 D), OPHTHALMIC
     Route: 047

REACTIONS (1)
  - ATRIAL FIBRILLATION [None]
